FAERS Safety Report 7941858-9 (Version None)
Quarter: 2011Q4

REPORT INFORMATION
  Report Type: 
  Country: None (occurrence: None)
  Receive Date: 20111128
  Receipt Date: 20111118
  Transmission Date: 20120403
  Serious: Yes (Life-Threatening, Hospitalization)
  Sender: FDA-Public Use
  Company Number: US-BAYER-201039136NA

PATIENT
  Age: 25 Year
  Sex: Female
  Weight: 65 kg

DRUGS (14)
  1. XOPENEX [Concomitant]
  2. NSAID'S [Concomitant]
  3. YAZ [Suspect]
     Indication: MENSTRUATION IRREGULAR
     Dosage: UNK
     Route: 048
  4. LEXAPRO [Concomitant]
     Dosage: 20 MG, UNK
     Route: 048
  5. YASMIN [Suspect]
  6. OMEPRAZOLE [Concomitant]
     Dosage: 20 MG, QD
     Route: 048
  7. ATROVENT [Concomitant]
  8. QVAR 40 [Concomitant]
  9. ALBUTEROL [Concomitant]
  10. SPIRIVA [Concomitant]
  11. WELLBUTRIN [Concomitant]
  12. CLINDAMYCIN [Concomitant]
  13. BACTRIM DS [Concomitant]
  14. BENADRYL [Concomitant]

REACTIONS (12)
  - ORGAN FAILURE [None]
  - GASTROINTESTINAL HAEMORRHAGE [None]
  - CHOLECYSTITIS ACUTE [None]
  - BILE DUCT OBSTRUCTION [None]
  - ABDOMINAL PAIN [None]
  - GALLBLADDER NON-FUNCTIONING [None]
  - BILE DUCT STONE [None]
  - BILIARY DILATATION [None]
  - BILIARY COLIC [None]
  - COLITIS [None]
  - CHOLELITHIASIS [None]
  - NEOPLASM [None]
